FAERS Safety Report 21457059 (Version 21)
Quarter: 2025Q2

REPORT INFORMATION
  Report Type: Report from Study
  Country: CH (occurrence: CH)
  Receive Date: 20221014
  Receipt Date: 20250424
  Transmission Date: 20250716
  Serious: Yes (Hospitalization, Other)
  Sender: NOVARTIS
  Company Number: CH-NOVARTISPH-NVSC2022CH102093

PATIENT
  Age: 58 Year
  Sex: Female
  Weight: 55.5 kg

DRUGS (9)
  1. KISQALI [Suspect]
     Active Substance: RIBOCICLIB SUCCINATE
     Indication: Breast cancer
     Route: 048
     Dates: start: 20220413, end: 20220502
  2. KISQALI [Suspect]
     Active Substance: RIBOCICLIB SUCCINATE
     Route: 065
  3. KISQALI [Suspect]
     Active Substance: RIBOCICLIB SUCCINATE
     Route: 065
     Dates: start: 20230130
  4. KISQALI [Suspect]
     Active Substance: RIBOCICLIB SUCCINATE
     Route: 065
     Dates: start: 20230503, end: 20230509
  5. KISQALI [Suspect]
     Active Substance: RIBOCICLIB SUCCINATE
     Route: 065
  6. FEMARA [Suspect]
     Active Substance: LETROZOLE
     Indication: Breast cancer
     Route: 048
     Dates: start: 20220413
  7. FEMARA [Suspect]
     Active Substance: LETROZOLE
     Route: 065
     Dates: end: 20230416
  8. XGEVA [Concomitant]
     Active Substance: DENOSUMAB
     Indication: Product used for unknown indication
     Route: 065
  9. FULVESTRANT [Concomitant]
     Active Substance: FULVESTRANT
     Indication: Product used for unknown indication
     Route: 065
     Dates: start: 20230417

REACTIONS (19)
  - Breast cancer [Unknown]
  - Malignant neoplasm progression [Unknown]
  - Ascites [Recovering/Resolving]
  - Neutrophil count decreased [Recovered/Resolved]
  - Neutrophil count decreased [Recovered/Resolved]
  - White blood cell count decreased [Not Recovered/Not Resolved]
  - Epilepsy [Recovered/Resolved]
  - Seizure [Recovered/Resolved]
  - White blood cell count decreased [Recovered/Resolved]
  - Anaemia [Recovered/Resolved]
  - Lymphocyte count decreased [Recovered/Resolved]
  - Hypocalcaemia [Recovered/Resolved]
  - Hypoalbuminaemia [Recovered/Resolved]
  - Hypocalcaemia [Recovered/Resolved]
  - Hypocalcaemia [Recovered/Resolved]
  - Lymphocyte count decreased [Not Recovered/Not Resolved]
  - Oedema peripheral [Recovered/Resolved]
  - Incorrect dose administered [Recovered/Resolved]
  - Anaemia [Not Recovered/Not Resolved]

NARRATIVE: CASE EVENT DATE: 20220406
